FAERS Safety Report 25793040 (Version 1)
Quarter: 2025Q3

REPORT INFORMATION
  Report Type: Spontaneous
  Country: KR (occurrence: KR)
  Receive Date: 20250911
  Receipt Date: 20250911
  Transmission Date: 20251021
  Serious: Yes (Other)
  Sender: PFIZER
  Company Number: KR-BRISTOL-MYERS SQUIBB COMPANY-2025-121538

PATIENT

DRUGS (2)
  1. BRAFTOVI [Suspect]
     Active Substance: ENCORAFENIB
     Route: 065
  2. OPDIVO [Suspect]
     Active Substance: NIVOLUMAB
     Route: 065

REACTIONS (1)
  - Renal impairment [Unknown]
